FAERS Safety Report 8483622-0 (Version None)
Quarter: 2012Q3

REPORT INFORMATION
  Report Type: 
  Country: None (occurrence: None)
  Receive Date: 20120702
  Receipt Date: 20120628
  Transmission Date: 20120928
  Serious: Yes (Other)
  Sender: FDA-Public Use
  Company Number: US-ROCHE-1021913

PATIENT
  Sex: Male

DRUGS (3)
  1. NEXIUM [Concomitant]
     Dosage: UNKNOWN
  2. HYDROCODONE [Concomitant]
     Indication: PAIN
     Route: 065
  3. ZELBORAF [Suspect]
     Indication: METASTATIC MALIGNANT MELANOMA
     Route: 048

REACTIONS (13)
  - TINNITUS [None]
  - SUNBURN [None]
  - PAIN IN EXTREMITY [None]
  - HYPOACUSIS [None]
  - RASH [None]
  - DISEASE PROGRESSION [None]
  - NEOPLASM [None]
  - MASS [None]
  - ACNE [None]
  - EAR DISCOMFORT [None]
  - FATIGUE [None]
  - VISUAL ACUITY REDUCED [None]
  - NAUSEA [None]
